FAERS Safety Report 9614392 (Version 2)
Quarter: 2014Q2

REPORT INFORMATION
  Report Type: Report from Study
  Country: CA (occurrence: CA)
  Receive Date: 20131011
  Receipt Date: 20140521
  Transmission Date: 20141212
  Serious: Yes (Other)
  Sender: FDA-Public Use
  Company Number: CA-JNJFOC-20131004931

PATIENT
  Age: 39 Year
  Sex: Male
  Weight: 92 kg

DRUGS (4)
  1. REMICADE [Suspect]
     Indication: CROHN^S DISEASE
     Route: 042
  2. REMICADE [Suspect]
     Indication: CROHN^S DISEASE
     Route: 042
     Dates: start: 20090121
  3. HYDROXYCHLOROQUINE [Concomitant]
     Indication: CROHN^S DISEASE
     Route: 065
     Dates: start: 2010
  4. PREDNISONE [Concomitant]
     Indication: CROHN^S DISEASE
     Route: 065
     Dates: start: 2010

REACTIONS (2)
  - VIIth nerve paralysis [Recovered/Resolved]
  - Viral infection [Recovered/Resolved]
